FAERS Safety Report 16800354 (Version 1)
Quarter: 2019Q3

REPORT INFORMATION
  Report Type: Spontaneous
  Country: US (occurrence: US)
  Receive Date: 20190912
  Receipt Date: 20190912
  Transmission Date: 20191005
  Serious: No
  Sender: FDA-Public Use
  Company Number: US-ASTRAZENECA-2019SF17270

PATIENT
  Age: 62 Year
  Sex: Male

DRUGS (1)
  1. TAGRISSO [Suspect]
     Active Substance: OSIMERTINIB
     Indication: ILL-DEFINED DISORDER
     Dosage: 80.0MG UNKNOWN
     Route: 048
     Dates: start: 201902

REACTIONS (5)
  - Back pain [Unknown]
  - Dry skin [Unknown]
  - Muscle spasms [Unknown]
  - Gastrooesophageal reflux disease [Unknown]
  - Feeling cold [Unknown]
